FAERS Safety Report 9822900 (Version 4)
Quarter: 2014Q2

REPORT INFORMATION
  Report Type: Spontaneous
  Country: JP (occurrence: JP)
  Receive Date: 20140116
  Receipt Date: 20140401
  Transmission Date: 20141212
  Serious: Yes (Hospitalization)
  Sender: FDA-Public Use
  Company Number: JP-ELI_LILLY_AND_COMPANY-JP201401001433

PATIENT
  Age: 46 Year
  Sex: Male
  Weight: 57 kg

DRUGS (16)
  1. HUMALOG LISPRO [Suspect]
     Indication: TYPE 2 DIABETES MELLITUS
     Dosage: 30 IU, QD
     Route: 058
     Dates: start: 20131204, end: 20131205
  2. HUMALOG LISPRO [Suspect]
     Dosage: 32 IU, QD
     Route: 058
     Dates: start: 20131206, end: 20131209
  3. HUMALOG LISPRO [Suspect]
     Dosage: 36 IU, QD
     Route: 058
     Dates: start: 20131210, end: 20131216
  4. LANTUS [Suspect]
     Indication: TYPE 2 DIABETES MELLITUS
     Dosage: 12 IU, QD
     Route: 058
     Dates: start: 20131204, end: 20131210
  5. LANTUS [Suspect]
     Dosage: 11 IU, QD
     Route: 058
     Dates: start: 20131211, end: 20131215
  6. RISPERIDONE [Suspect]
     Dosage: 2 MG, QD
     Route: 048
     Dates: end: 20131213
  7. GOODMIN [Suspect]
     Indication: PRODUCT USED FOR UNKNOWN INDICATION
     Dosage: 0.25 MG, QD
     Route: 048
     Dates: end: 20131213
  8. NOVOLIN [Concomitant]
     Dosage: 5 IU, QD
     Route: 042
     Dates: start: 20131210, end: 20131213
  9. NOVORAPID [Concomitant]
     Dosage: 5 IU, QD
     Route: 058
     Dates: start: 20131216, end: 20131216
  10. NOVORAPID [Concomitant]
     Dosage: 40 IU, QD
     Route: 058
     Dates: start: 20131217, end: 20131217
  11. NOVORAPID [Concomitant]
     Dosage: 44 IU, QD
     Route: 058
     Dates: start: 20131218, end: 20131218
  12. NOVORAPID [Concomitant]
     Dosage: 44 IU, QD
     Route: 058
     Dates: start: 20131225, end: 20131225
  13. NOVORAPID [Concomitant]
     Dosage: 38 IU, QD
     Route: 058
     Dates: start: 20131226, end: 20131226
  14. NOVORAPID [Concomitant]
     Dosage: 34 IU, QD
     Route: 058
     Dates: start: 20131228, end: 20131228
  15. NOVORAPID [Concomitant]
     Dosage: 36 IU, QD
     Route: 058
     Dates: start: 20131229, end: 20131229
  16. NOVORAPID [Concomitant]
     Dosage: 40 IU, QD
     Route: 058
     Dates: start: 20130115, end: 20130115

REACTIONS (1)
  - Hepatic function abnormal [Recovered/Resolved]
